FAERS Safety Report 7451528-1 (Version None)
Quarter: 2011Q2

REPORT INFORMATION
  Report Type: 
  Country: None (occurrence: None)
  Receive Date: 20110502
  Receipt Date: 20110419
  Transmission Date: 20111010
  Serious: Yes (Hospitalization)
  Sender: FDA-Public Use
  Company Number: PHHY2011TW15523

PATIENT
  Sex: Female

DRUGS (1)
  1. EXJADE [Suspect]
     Indication: APLASTIC ANAEMIA
     Dosage: 750 MG, DAILY
     Route: 048

REACTIONS (4)
  - DISCOMFORT [None]
  - NASOPHARYNGITIS [None]
  - COUGH [None]
  - OEDEMA [None]
